FAERS Safety Report 14583980 (Version 1)
Quarter: 2018Q1

REPORT INFORMATION
  Report Type: Spontaneous
  Country: ES (occurrence: ES)
  Receive Date: 20180228
  Receipt Date: 20180228
  Transmission Date: 20180509
  Serious: Yes (Life-Threatening, Other)
  Sender: FDA-Public Use
  Company Number: ES-TEVA-2018-ES-861435

PATIENT
  Age: 62 Year
  Sex: Female

DRUGS (4)
  1. MONUROL [Suspect]
     Active Substance: FOSFOMYCIN TROMETHAMINE
     Dosage: 1 DOSAGE FORMS DAILY; 1 DF, DAILY
     Route: 048
  2. PALBOCICLIB [Suspect]
     Active Substance: PALBOCICLIB
     Dosage: 125 MG, CYCLIC: X 21 DAYS/1 WEEK OFF
     Route: 048
     Dates: start: 20160505, end: 20160629
  3. LETROZOLE. [Suspect]
     Active Substance: LETROZOLE
     Indication: BREAST CANCER METASTATIC
     Dosage: 2.5 MILLIGRAM DAILY; 2.5 MG, DAILY
     Route: 048
     Dates: start: 20160505, end: 20170823
  4. PALBOCICLIB [Suspect]
     Active Substance: PALBOCICLIB
     Indication: BREAST CANCER METASTATIC
     Dosage: 100 MG, CYCLIC: X 21 DAYS/1 WEEK OFF
     Route: 048
     Dates: start: 20160714, end: 20170816

REACTIONS (1)
  - Gamma-glutamyltransferase increased [Recovered/Resolved]

NARRATIVE: CASE EVENT DATE: 20170828
